FAERS Safety Report 12795026 (Version 1)
Quarter: 2016Q3

REPORT INFORMATION
  Report Type: Report from Study
  Country: IN (occurrence: IN)
  Receive Date: 20160929
  Receipt Date: 20160929
  Transmission Date: 20161109
  Serious: Yes (Other)
  Sender: FDA-Public Use
  Company Number: IN-GLAXOSMITHKLINE-IN2016GSK142085

PATIENT
  Sex: Female

DRUGS (3)
  1. INDINAVIR [Suspect]
     Active Substance: INDINAVIR
     Indication: ANTIVIRAL PROPHYLAXIS
  2. LAMIVUDINE. [Suspect]
     Active Substance: LAMIVUDINE
     Indication: ANTIVIRAL PROPHYLAXIS
  3. ZIDOVUDINE. [Suspect]
     Active Substance: ZIDOVUDINE
     Indication: ANTIVIRAL PROPHYLAXIS

REACTIONS (1)
  - Hyperbilirubinaemia [Unknown]
